FAERS Safety Report 7482228-X (Version None)
Quarter: 2011Q2

REPORT INFORMATION
  Report Type: 
  Country: None (occurrence: None)
  Receive Date: 20110516
  Receipt Date: 20110505
  Transmission Date: 20111010
  Serious: No
  Sender: FDA-Public Use
  Company Number: US-PFIZER INC-2011097623

PATIENT
  Sex: Female

DRUGS (1)
  1. ZITHROMAX [Suspect]
     Indication: DENTAL CARE
     Dosage: UNK
     Route: 048
     Dates: start: 20110419

REACTIONS (10)
  - NAUSEA [None]
  - DIARRHOEA [None]
  - DIZZINESS [None]
  - ABDOMINAL PAIN UPPER [None]
  - DECREASED APPETITE [None]
  - VOMITING [None]
  - ASTHENIA [None]
  - ABDOMINAL PAIN [None]
  - HAEMOGLOBIN DECREASED [None]
  - MALAISE [None]
